FAERS Safety Report 9385754 (Version 3)
Quarter: 2013Q3

REPORT INFORMATION
  Report Type: Spontaneous
  Country: GB (occurrence: GB)
  Receive Date: 20130705
  Receipt Date: 20130823
  Transmission Date: 20140515
  Serious: No
  Sender: FDA-Public Use
  Company Number: GB-UCBSA-091058

PATIENT
  Age: 74 Year
  Sex: Female
  Weight: 75.4 kg

DRUGS (7)
  1. NEUPRO [Suspect]
     Indication: PARKINSON^S DISEASE
     Dosage: 4 MG PATCH
     Route: 062
     Dates: start: 20130620, end: 20130629
  2. NEUPRO [Suspect]
     Indication: PARKINSON^S DISEASE
     Dosage: 2 MG PATCH
     Route: 062
     Dates: start: 201305, end: 201306
  3. MADOPAR [Concomitant]
     Dosage: 2 X 100/25 MG CAPSULES PER DAY;
  4. OMEPRAZOLE [Concomitant]
  5. VITAMIN D [Concomitant]
  6. ESOMEPRAZOLE [Concomitant]
     Route: 048
  7. CO BENELDOPA [Concomitant]
     Dosage: 25/100
     Route: 048

REACTIONS (7)
  - Syncope [Recovered/Resolved]
  - Vomiting [Recovered/Resolved]
  - Eye movement disorder [Unknown]
  - Speech disorder [Unknown]
  - Heart rate irregular [Unknown]
  - Retching [Unknown]
  - Nausea [Unknown]
